FAERS Safety Report 26010938 (Version 1)
Quarter: 2025Q4

REPORT INFORMATION
  Report Type: Spontaneous
  Country: US (occurrence: None)
  Receive Date: 20251106
  Receipt Date: 20251106
  Transmission Date: 20260118
  Serious: Yes (Death)
  Sender: FDA-CTU
  Company Number: None

PATIENT
  Age: 88 Year
  Sex: Male

DRUGS (9)
  1. REPATHA [Suspect]
     Active Substance: EVOLOCUMAB
     Indication: Hypercholesterolaemia
     Dosage: 140 MG/ML EVERY 2 WEEKS SUBCUTANEOUS?
     Route: 058
     Dates: start: 20240816, end: 20250827
  2. magnesium 250 mg [Concomitant]
  3. tumeric 450 mg [Concomitant]
  4. citrucel 500mg [Concomitant]
  5. LOSARTAN [Concomitant]
     Active Substance: LOSARTAN
  6. ELIQUIS [Concomitant]
     Active Substance: APIXABAN
  7. novolog u-100 [Concomitant]
  8. FUROSEMIDE [Concomitant]
     Active Substance: FUROSEMIDE
  9. oxycodone/apap 7.51325mg [Concomitant]

REACTIONS (1)
  - Obstruction [None]

NARRATIVE: CASE EVENT DATE: 20250827
